FAERS Safety Report 5748990-9 (Version None)
Quarter: 2008Q2

REPORT INFORMATION
  Report Type: 
  Country: None (occurrence: None)
  Receive Date: 20080527
  Receipt Date: 20080519
  Transmission Date: 20081010
  Serious: No
  Sender: FDA-Public Use
  Company Number: FR-ELI_LILLY_AND_COMPANY-FR200804000665

PATIENT
  Age: 38 Year
  Sex: Female
  Weight: 68 kg

DRUGS (4)
  1. ZYPREXA [Suspect]
     Indication: BIPOLAR DISORDER
     Dosage: 5 MG, DAILY (1/D)
     Dates: start: 19990101
  2. ZYPREXA [Suspect]
     Dosage: 10 MG, DAILY (1/D)
     Dates: start: 19990101
  3. ZYPREXA [Suspect]
     Dosage: 5 MG, DAILY (1/D)
     Route: 048
     Dates: start: 20060307
  4. TEGRETOL [Concomitant]
     Indication: BIPOLAR DISORDER
     Dosage: 600 MG, DAILY (1/D)
     Route: 048
     Dates: start: 20050620

REACTIONS (3)
  - NEUTROPHIL COUNT DECREASED [None]
  - WEIGHT INCREASED [None]
  - WHITE BLOOD CELL COUNT DECREASED [None]
